FAERS Safety Report 4269914-X (Version None)
Quarter: 2004Q1

REPORT INFORMATION
  Report Type: 
  Country: None (occurrence: None)
  Receive Date: 20040112
  Receipt Date: 20031230
  Transmission Date: 20041129
  Serious: Yes (Hospitalization)
  Sender: FDA-Public Use
  Company Number: US-JNJFOC-20040100198

PATIENT
  Age: 70 Year
  Sex: Female

DRUGS (12)
  1. INFLIXIMAB (INFLIXIMAB, RECOMBINANT) LYOPHILIZED POWDER [Suspect]
     Indication: RHEUMATOID ARTHRITIS
     Dosage: INTRAVENOUS
     Route: 042
     Dates: start: 20010419
  2. ACCUPRIL [Concomitant]
  3. ATENOLOL [Concomitant]
  4. CLONIDINE [Concomitant]
  5. LORAZEPAM [Concomitant]
  6. MULTIVITAMIN (MULTIVITAMINS) [Concomitant]
  7. OSCAL (CALCIUM CARBONATE) [Concomitant]
  8. PERCOCET [Concomitant]
  9. PREMARIN [Concomitant]
  10. METHOTREXATE [Concomitant]
  11. LOPID [Concomitant]
  12. DETROL LA (TOLTERODINE L-TARTRATE) [Concomitant]

REACTIONS (4)
  - CARDIOMEGALY [None]
  - LOBAR PNEUMONIA [None]
  - PLEURAL EFFUSION [None]
  - PLEURITIC PAIN [None]
